FAERS Safety Report 9251001 (Version 1)
Quarter: 2013Q1

REPORT INFORMATION
  Report Type: Spontaneous
  Country: US (occurrence: None)
  Receive Date: 20130305
  Receipt Date: 20130305
  Transmission Date: 20140127
  Serious: Yes (Hospitalization, Other)
  Sender: FDA-Public Use
  Company Number: 163-21880-12100095

PATIENT
  Age: 63 Year
  Sex: Female
  Weight: 102.51 kg

DRUGS (5)
  1. REVLIMID (LENALIDOMIDE) (CAPSULES) [Suspect]
     Indication: MYELODYSPLASTIC SYNDROME
     Dosage: 1 IN 1 D
     Route: 048
     Dates: start: 200812, end: 201207
  2. REVLIMID (LENALIDOMIDE) (CAPSULES) [Suspect]
     Dosage: 1 IN 1 D
     Route: 048
     Dates: start: 200812, end: 201207
  3. REVLIMID (LENALIDOMIDE) (CAPSULES) [Suspect]
     Dosage: 1 IN 1 D
     Route: 048
     Dates: start: 200812, end: 201207
  4. VITAMIN B12 (CYANOCOBALAMIN) [Concomitant]
  5. PACKED RED BLOOD CELLS (RED BLOOD CELLS) [Concomitant]

REACTIONS (4)
  - Decreased appetite [None]
  - Asthenia [None]
  - Pancytopenia [None]
  - No therapeutic response [None]
